FAERS Safety Report 5369726-X (Version None)
Quarter: 2007Q2

REPORT INFORMATION
  Report Type: 
  Country: None (occurrence: None)
  Receive Date: 20070621
  Receipt Date: 20070615
  Transmission Date: 20071010
  Serious: Yes (Death, Hospitalization)
  Sender: FDA-Public Use
  Company Number: 2007SP011961

PATIENT
  Age: 73 Year
  Sex: Male
  Weight: 55 kg

DRUGS (5)
  1. AERIUS (DESLORATADINE) ( (DESLORATADINE)) [Suspect]
     Indication: DRUG USE FOR UNKNOWN INDICATION
     Dosage: 1 DF; QD
  2. XATRAL (ALFUZOSIN) [Suspect]
     Indication: BENIGN PROSTATIC HYPERPLASIA
     Dosage: 10 MG; QD; PO
     Route: 048
  3. LEUPROLIDE ACETATE [Suspect]
     Indication: PROSTATE CANCER
     Dosage: SC
     Route: 058
  4. PREVISCAN (FLUINDIONE) [Suspect]
     Indication: PHLEBITIS
     Dosage: 20 MG;QD; PO
     Route: 048
     Dates: start: 20070220, end: 20070221
  5. PREVISCAN (FLUINDIONE) [Suspect]
     Indication: THROMBOPHLEBITIS
     Dosage: 20 MG;QD; PO
     Route: 048
     Dates: start: 20070220, end: 20070221

REACTIONS (4)
  - INFECTION [None]
  - PHLEBITIS [None]
  - THROMBOPHLEBITIS [None]
  - VASCULAR PURPURA [None]
